FAERS Safety Report 25978233 (Version 1)
Quarter: 2025Q4

REPORT INFORMATION
  Report Type: Spontaneous
  Country: EU (occurrence: EU)
  Receive Date: 20251030
  Receipt Date: 20251030
  Transmission Date: 20260118
  Serious: Yes (Hospitalization)
  Sender: BAXTER
  Company Number: EU-MLMSERVICE-20251016-PI679666-00273-1

PATIENT
  Age: 5 Month
  Sex: Male

DRUGS (2)
  1. PROPOFOL [Suspect]
     Active Substance: PROPOFOL
     Indication: Sedation
     Dosage: UNK
     Route: 065
  2. THIOPENTAL [Suspect]
     Active Substance: THIOPENTAL
     Indication: Sedation
     Dosage: UNK
     Route: 065

REACTIONS (5)
  - Movement disorder [Unknown]
  - Paradoxical drug reaction [Unknown]
  - Condition aggravated [Unknown]
  - Dysphoria [Unknown]
  - Irritability [Unknown]
